FAERS Safety Report 19495707 (Version 1)
Quarter: 2021Q3

REPORT INFORMATION
  Report Type: Spontaneous
  Country: DK (occurrence: DK)
  Receive Date: 20210706
  Receipt Date: 20210706
  Transmission Date: 20211014
  Serious: Yes (Hospitalization)
  Sender: FDA-Public Use
  Company Number: DK-TEVA-2021-DK-1929029

PATIENT
  Age: 84 Year
  Sex: Female
  Weight: 63 kg

DRUGS (1)
  1. PREDNISOLONE. [Suspect]
     Active Substance: PREDNISOLONE
     Indication: POLYMYALGIA RHEUMATICA
     Dosage: DOSAGE: UNKNOWN  , START DATE UNKNOWN. PATIENT STARTS REDUCTION PLAN FROM 25FEB2021.
     Route: 048

REACTIONS (8)
  - Osteoporotic fracture [Not Recovered/Not Resolved]
  - Musculoskeletal stiffness [Unknown]
  - Arthralgia [Unknown]
  - Pain in extremity [Unknown]
  - Musculoskeletal pain [Unknown]
  - Hypokinesia [Unknown]
  - Osteoporotic fracture [Not Recovered/Not Resolved]
  - Neck pain [Unknown]

NARRATIVE: CASE EVENT DATE: 20210221
